FAERS Safety Report 9966640 (Version 2)
Quarter: 2014Q1

REPORT INFORMATION
  Report Type: Report from Study
  Country: US (occurrence: US)
  Receive Date: 20140305
  Receipt Date: 20140305
  Transmission Date: 20141002
  Serious: No
  Sender: FDA-Public Use
  Company Number: US-ABBVIE-13P-163-1059029-00

PATIENT
  Age: 52 Year
  Sex: Male

DRUGS (9)
  1. HUMIRA [Suspect]
     Indication: COLITIS ULCERATIVE
     Dates: start: 20130123
  2. HUMIRA [Suspect]
     Indication: CROHN^S DISEASE
     Dates: start: 20130215
  3. HUMIRA [Suspect]
  4. ELAVIL [Concomitant]
     Indication: INSOMNIA
  5. BENTYL [Concomitant]
     Indication: COLITIS ULCERATIVE
  6. NOVOLOG [Concomitant]
     Indication: DIABETES MELLITUS
     Dosage: 35-40 UNITA DAILY
  7. BUDESONIDE [Concomitant]
     Indication: COLITIS ULCERATIVE
     Dosage: TAPER NOW 3MG DAILY
  8. LOSARTAN [Concomitant]
     Indication: PRODUCT USED FOR UNKNOWN INDICATION
     Dosage: 100MG/12MG
  9. ATENOLOL [Concomitant]
     Indication: PRODUCT USED FOR UNKNOWN INDICATION

REACTIONS (12)
  - Fatigue [Not Recovered/Not Resolved]
  - Rash [Not Recovered/Not Resolved]
  - Gastrooesophageal reflux disease [Not Recovered/Not Resolved]
  - Lower respiratory tract infection [Not Recovered/Not Resolved]
  - Throat irritation [Not Recovered/Not Resolved]
  - Productive cough [Not Recovered/Not Resolved]
  - Pain [Not Recovered/Not Resolved]
  - Anaemia [Unknown]
  - Infusion related reaction [Unknown]
  - Rash [Not Recovered/Not Resolved]
  - Rash [Not Recovered/Not Resolved]
  - Psoriasis [Not Recovered/Not Resolved]
